FAERS Safety Report 6404834-3 (Version None)
Quarter: 2009Q4

REPORT INFORMATION
  Report Type: 
  Country: None (occurrence: None)
  Receive Date: 20091016
  Receipt Date: 20091008
  Transmission Date: 20100525
  Serious: Yes (Other)
  Sender: FDA-Public Use
  Company Number: CH-AMGEN-US368741

PATIENT
  Age: 37 Year
  Sex: Female

DRUGS (1)
  1. ENBREL [Suspect]
     Indication: RHEUMATOID ARTHRITIS
     Dosage: UNKNOWN DOSE ONCE WEEKLY
     Route: 058

REACTIONS (3)
  - AUTOANTIBODY POSITIVE [None]
  - FIBRIN DEGRADATION PRODUCTS INCREASED [None]
  - LEUKOCYTOSIS [None]
